FAERS Safety Report 5809493-6 (Version None)
Quarter: 2008Q3

REPORT INFORMATION
  Report Type: 
  Country: None (occurrence: None)
  Receive Date: 20080715
  Receipt Date: 20020731
  Transmission Date: 20090109
  Serious: Yes (Other)
  Sender: FDA-Public Use
  Company Number: PHHO2002DE11522

PATIENT
  Sex: Female

DRUGS (3)
  1. TOBI; PATHOGENESIS CORPORATION [Suspect]
     Indication: PSEUDOMONAS INFECTION
     Dosage: 300 MG, BID
     Route: 055
     Dates: start: 20010801, end: 20020709
  2. ITRACONAZOLE [Concomitant]
  3. PREDNISONE TAB [Concomitant]
     Dosage: 2 MG/KG, UNK
     Dates: start: 20020605

REACTIONS (3)
  - BRONCHOPULMONARY ASPERGILLOSIS ALLERGIC [None]
  - DYSPNOEA [None]
  - LUNG DISORDER [None]
